FAERS Safety Report 5076501-2 (Version None)
Quarter: 2006Q3

REPORT INFORMATION
  Report Type: 
  Country: None (occurrence: None)
  Receive Date: 20060807
  Receipt Date: 20060724
  Transmission Date: 20061208
  Serious: Yes (Hospitalization, Other)
  Sender: FDA-Public Use
  Company Number: 2006090569

PATIENT

DRUGS (3)
  1. NORVASC [Suspect]
     Indication: DRUG USE FOR UNKNOWN INDICATION
     Dosage: ORAL
     Route: 048
  2. ZANTAC [Concomitant]
  3. ALLOPURINOL [Concomitant]

REACTIONS (1)
  - CHROMATURIA [None]
